FAERS Safety Report 7232328-4 (Version None)
Quarter: 2011Q1

REPORT INFORMATION
  Report Type: 
  Country: None (occurrence: None)
  Receive Date: 20110119
  Receipt Date: 20110105
  Transmission Date: 20110831
  Serious: Yes (Other)
  Sender: FDA-Public Use
  Company Number: US-RANBAXY-2010US-40669

PATIENT

DRUGS (1)
  1. AMOXICILLIN [Suspect]
     Indication: PROPHYLAXIS
     Dosage: 500 MG, TID
     Route: 065
     Dates: start: 20040101

REACTIONS (5)
  - ASTHMA [None]
  - LOSS OF CONSCIOUSNESS [None]
  - URTICARIA [None]
  - SPEECH DISORDER [None]
  - ECZEMA [None]
